FAERS Safety Report 9355216 (Version 3)
Quarter: 2013Q3

REPORT INFORMATION
  Report Type: Report from Study
  Country: AU (occurrence: AU)
  Receive Date: 20130619
  Receipt Date: 20130912
  Transmission Date: 20140515
  Serious: Yes (Hospitalization)
  Sender: FDA-Public Use
  Company Number: PHHY2013AU061472

PATIENT
  Sex: Male

DRUGS (1)
  1. SANDOSTATIN LAR [Suspect]
     Indication: CARCINOID SYNDROME
     Dosage: 20 MG, UNK
     Route: 030

REACTIONS (4)
  - Fall [Unknown]
  - General physical health deterioration [Unknown]
  - Pain in extremity [Unknown]
  - Groin pain [Unknown]
